FAERS Safety Report 5118407-6 (Version None)
Quarter: 2006Q4

REPORT INFORMATION
  Report Type: 
  Country: None (occurrence: None)
  Receive Date: 20061002
  Receipt Date: 20060906
  Transmission Date: 20070319
  Serious: Yes (Life-Threatening)
  Sender: FDA-Public Use
  Company Number: PHBS2006JP13657

PATIENT
  Age: 59 Year
  Sex: Male
  Weight: 78 kg

DRUGS (7)
  1. TEGRETOL [Suspect]
     Indication: BLEPHAROSPASM
     Dosage: 200 MG/DAY
     Route: 048
     Dates: start: 20060809, end: 20060821
  2. PLETAL [Suspect]
     Indication: CEREBRAL INFARCTION
     Dosage: 200 MG/DAY
     Route: 048
     Dates: start: 20060617, end: 20060821
  3. COMMON COLD MEDICINE [Suspect]
     Indication: NASOPHARYNGITIS
     Route: 048
     Dates: start: 20060818, end: 20060818
  4. SLO-BID [Concomitant]
     Indication: ASTHMA
     Dosage: 200 MG/DAY
     Route: 048
     Dates: start: 20060422, end: 20060805
  5. SPIROPENT [Concomitant]
     Indication: ASTHMA
     Dosage: 20 UG/DAY
     Route: 048
     Dates: start: 20060422, end: 20060805
  6. RIVOTRIL [Concomitant]
     Indication: FACIAL SPASM
     Dosage: 0.5 MG/DAY
     Route: 048
     Dates: start: 20060617, end: 20060711
  7. RIVOTRIL [Concomitant]
     Dosage: 1 MG/DAY
     Route: 048
     Dates: start: 20060712, end: 20060808

REACTIONS (11)
  - BLOOD LACTATE DEHYDROGENASE INCREASED [None]
  - CHILLS [None]
  - DIARRHOEA [None]
  - DRUG ERUPTION [None]
  - ECZEMA [None]
  - ENTEROCOLITIS [None]
  - LYMPHOCYTE COUNT DECREASED [None]
  - NEUTROPHIL COUNT INCREASED [None]
  - PLATELET COUNT DECREASED [None]
  - PYREXIA [None]
  - THROMBOCYTOPENIA [None]
